FAERS Safety Report 9675507 (Version 2)
Quarter: 2013Q4

REPORT INFORMATION
  Report Type: Spontaneous
  Country: SI (occurrence: SI)
  Receive Date: 20131107
  Receipt Date: 20131227
  Transmission Date: 20140711
  Serious: Yes (Life-Threatening, Hospitalization)
  Sender: FDA-Public Use
  Company Number: SI-MYLANLABS-2013S1024374

PATIENT
  Age: 52 Year
  Sex: Female

DRUGS (4)
  1. DULOXETINE [Suspect]
     Indication: MAJOR DEPRESSION
     Dosage: 30MG; TITRATED TO 90MG DAILY
     Route: 065
  2. DULOXETINE [Interacting]
     Indication: MAJOR DEPRESSION
     Dosage: 90MG DAILY
     Route: 065
  3. BUPROPION [Interacting]
     Indication: MAJOR DEPRESSION
     Dosage: 300MG DAILY
     Route: 065
  4. ZOLPIDEM [Concomitant]
     Route: 065

REACTIONS (3)
  - Long QT syndrome [Recovered/Resolved]
  - Drug interaction [Recovered/Resolved]
  - Toxicity to various agents [Recovered/Resolved]
